FAERS Safety Report 6928445-6 (Version None)
Quarter: 2010Q3

REPORT INFORMATION
  Report Type: 
  Country: None (occurrence: None)
  Receive Date: 20100817
  Receipt Date: 20100811
  Transmission Date: 20110219
  Serious: Yes (Death)
  Sender: FDA-Public Use
  Company Number: DE-CEPHALON-2010003839

PATIENT
  Age: 57 Year
  Sex: Male
  Weight: 71 kg

DRUGS (2)
  1. EFFENTORA [Suspect]
     Indication: BREAKTHROUGH PAIN
     Route: 002
  2. DURAGESIC-100 [Concomitant]

REACTIONS (1)
  - ILEUS [None]
